FAERS Safety Report 8380898-5 (Version None)
Quarter: 2012Q2

REPORT INFORMATION
  Report Type: 
  Country: None (occurrence: None)
  Receive Date: 20120523
  Receipt Date: 20120517
  Transmission Date: 20120825
  Serious: Yes (Hospitalization)
  Sender: FDA-Public Use
  Company Number: US-MERCK-1202USA03888

PATIENT
  Age: 82 Year
  Sex: Female

DRUGS (2)
  1. FOSAMAX [Suspect]
     Indication: OSTEOPOROSIS
     Route: 048
     Dates: start: 19990101
  2. FOSAMAX [Suspect]
     Indication: OSTEOPENIA
     Route: 048
     Dates: start: 19990101

REACTIONS (9)
  - DEPRESSION [None]
  - OEDEMA PERIPHERAL [None]
  - PAIN IN EXTREMITY [None]
  - ANXIETY [None]
  - TOOTH LOSS [None]
  - PAIN [None]
  - LOW TURNOVER OSTEOPATHY [None]
  - HIP FRACTURE [None]
  - FEMUR FRACTURE [None]
